FAERS Safety Report 9573183 (Version 1)
Quarter: 2013Q3

REPORT INFORMATION
  Report Type: Spontaneous
  Country: US (occurrence: None)
  Receive Date: 20130930
  Receipt Date: 20130930
  Transmission Date: 20140515
  Serious: Yes (Hospitalization)
  Sender: FDA-Public Use
  Company Number: None

PATIENT
  Age: 70 Year
  Sex: Male
  Weight: 87.09 kg

DRUGS (9)
  1. EFFIENT [Suspect]
     Dates: end: 20130925
  2. ASPIRIN [Suspect]
     Indication: CHILLS
     Dosage: 2 TABLETS
     Dates: start: 20130925, end: 20130925
  3. METFORMIN [Concomitant]
  4. LEVOTHYROXINE [Concomitant]
  5. ALLOPURINAL [Concomitant]
  6. PANTORAZOLE [Concomitant]
  7. ATENOLOL [Concomitant]
  8. GLYBURIDE [Concomitant]
  9. LISINOPRIL [Concomitant]

REACTIONS (2)
  - Gingival bleeding [None]
  - Petechiae [None]
